FAERS Safety Report 12122964 (Version 2)
Quarter: 2018Q4

REPORT INFORMATION
  Report Type: Spontaneous
  Country: US (occurrence: US)
  Receive Date: 20160227
  Receipt Date: 20181217
  Transmission Date: 20190204
  Serious: Yes (Disabling, Other)
  Sender: FDA-Public Use
  Company Number: US-ACORDA-ACO_117261_2015

PATIENT
  Sex: Female
  Weight: 79.37 kg

DRUGS (2)
  1. AMPYRA [Suspect]
     Active Substance: DALFAMPRIDINE
     Indication: MULTIPLE SCLEROSIS
     Dosage: 10 MG, BID
     Route: 048
     Dates: start: 201308, end: 20140528
  2. TYSABRI [Suspect]
     Active Substance: NATALIZUMAB
     Indication: PRODUCT USED FOR UNKNOWN INDICATION
     Dosage: UNK
     Dates: end: 20150727

REACTIONS (16)
  - Gastric ulcer [Unknown]
  - Urinary tract infection [Unknown]
  - Influenza like illness [Recovering/Resolving]
  - Heart rate increased [Unknown]
  - Wrist fracture [Unknown]
  - Pain [Recovering/Resolving]
  - Fatigue [Recovering/Resolving]
  - Decreased interest [Recovering/Resolving]
  - Blindness unilateral [Unknown]
  - Palpitations [Unknown]
  - Malaise [Recovering/Resolving]
  - Atrial fibrillation [Unknown]
  - Echocardiogram abnormal [Unknown]
  - Angina pectoris [Unknown]
  - Depression [Not Recovered/Not Resolved]
  - Oedema [Unknown]

NARRATIVE: CASE EVENT DATE: 2015
